FAERS Safety Report 8118883-0 (Version None)
Quarter: 2012Q1

REPORT INFORMATION
  Report Type: 
  Country: None (occurrence: None)
  Receive Date: 20120207
  Receipt Date: 20120202
  Transmission Date: 20120608
  Serious: Yes (Other)
  Sender: FDA-Public Use
  Company Number: IT-BAYER-2012-006784

PATIENT
  Age: 70 Year
  Sex: Male

DRUGS (2)
  1. ASPIRIN [Suspect]
     Dosage: 100 MG, QD
     Route: 048
     Dates: start: 20101103, end: 20111104
  2. COUMADIN [Suspect]
     Dosage: 5 MG, PRN
     Route: 048
     Dates: start: 20101103, end: 20111104

REACTIONS (1)
  - EPISTAXIS [None]
